FAERS Safety Report 16774386 (Version 2)
Quarter: 2019Q3

REPORT INFORMATION
  Report Type: Report from Study
  Country: US (occurrence: US)
  Receive Date: 20190905
  Receipt Date: 20190906
  Transmission Date: 20191005
  Serious: Yes (Other)
  Sender: FDA-Public Use
  Company Number: US-ALEXION PHARMACEUTICALS INC.-A201913342

PATIENT
  Age: 40 Year
  Sex: Female
  Weight: 81.6 kg

DRUGS (3)
  1. ATIVAN [Concomitant]
     Active Substance: LORAZEPAM
     Indication: PSYCHOGENIC SEIZURE
     Dosage: 1 MG, UNK
     Route: 042
     Dates: start: 20180930
  2. STRENSIQ [Suspect]
     Active Substance: ASFOTASE ALFA
     Dosage: 86 MG, UNK
     Route: 065
     Dates: start: 20180928
  3. STRENSIQ [Suspect]
     Active Substance: ASFOTASE ALFA
     Indication: HYPOPHOSPHATASIA
     Dosage: 100 MG, UNK
     Route: 065
     Dates: start: 20170727

REACTIONS (1)
  - Abdominal pain upper [Recovered/Resolved]

NARRATIVE: CASE EVENT DATE: 20180926
